FAERS Safety Report 6567700-9 (Version None)
Quarter: 2010Q1

REPORT INFORMATION
  Report Type: 
  Country: None (occurrence: None)
  Receive Date: 20100203
  Receipt Date: 20100129
  Transmission Date: 20100710
  Serious: Yes (Other)
  Sender: FDA-Public Use
  Company Number: US-ASTRAZENECA-2007UW09599

PATIENT
  Age: 20748 Day
  Sex: Female
  Weight: 112 kg

DRUGS (13)
  1. SEROQUEL [Suspect]
     Indication: SLEEP DISORDER
     Dosage: 25 MG - 200 MG
     Route: 048
     Dates: start: 20021004
  2. SEROQUEL [Suspect]
     Indication: DEPRESSION
     Dosage: 25 MG - 200 MG
     Route: 048
     Dates: start: 20021004
  3. SEROQUEL [Suspect]
     Dosage: 25-150 MG
     Route: 048
     Dates: start: 20021008, end: 20060202
  4. SEROQUEL [Suspect]
     Dosage: 25-150 MG
     Route: 048
     Dates: start: 20021008, end: 20060202
  5. SEROQUEL [Suspect]
     Route: 048
     Dates: start: 20030716, end: 20060202
  6. SEROQUEL [Suspect]
     Route: 048
     Dates: start: 20030716, end: 20060202
  7. TRAZODONE [Concomitant]
     Indication: SLEEP DISORDER
     Dosage: 50 MG - 100 MG
     Dates: start: 19990704
  8. PAXIL [Concomitant]
     Route: 048
     Dates: start: 19990704
  9. KLONOPIN [Concomitant]
     Dates: start: 19990704
  10. LIPITOR [Concomitant]
     Dates: start: 20070122
  11. AVAPRO [Concomitant]
     Dates: start: 20070122
  12. LYRICA [Concomitant]
     Dates: start: 20070122
  13. CYMBALTA [Concomitant]
     Dates: start: 20070122

REACTIONS (5)
  - DIABETIC NEUROPATHY [None]
  - DIABETIC RETINOPATHY [None]
  - NEUROPATHY PERIPHERAL [None]
  - OBESITY [None]
  - TYPE 2 DIABETES MELLITUS [None]
